FAERS Safety Report 5201274-X (Version None)
Quarter: 2007Q1

REPORT INFORMATION
  Report Type: 
  Country: None (occurrence: None)
  Receive Date: 20070103
  Receipt Date: 20061218
  Transmission Date: 20070707
  Serious: Yes (Other)
  Sender: FDA-Public Use
  Company Number: FSC_0024_2006

PATIENT
  Sex: Female

DRUGS (3)
  1. VERAPAMIL [Suspect]
     Dosage: TPL
     Route: 064
     Dates: start: 20060201, end: 20060907
  2. ACEBUTOLOL [Suspect]
     Dosage: 400 MG Q DAY TPL
     Route: 064
     Dates: start: 20060507, end: 20061101
  3. METHYLDOPA [Suspect]
     Dosage: DF TPL
     Route: 064
     Dates: start: 20061101

REACTIONS (4)
  - CAESAREAN SECTION [None]
  - DRUG EXPOSURE DURING PREGNANCY [None]
  - FOETAL DISTRESS SYNDROME [None]
  - POSTMATURE BABY [None]
